FAERS Safety Report 7417160-0 (Version None)
Quarter: 2011Q2

REPORT INFORMATION
  Report Type: 
  Country: None (occurrence: None)
  Receive Date: 20110415
  Receipt Date: 20110304
  Transmission Date: 20111010
  Serious: Yes (Hospitalization, Other)
  Sender: FDA-Public Use
  Company Number: US-BAYER-201038189NA

PATIENT
  Age: 19 Year
  Sex: Female
  Weight: 59 kg

DRUGS (7)
  1. YASMIN [Suspect]
     Indication: PRODUCT USED FOR UNKNOWN INDICATION
     Dosage: UNK
     Dates: start: 20041121, end: 20060914
  2. MOTRIN [Concomitant]
     Dosage: 800 MG, UNK
  3. ANCEF [Concomitant]
  4. OCELLA [Suspect]
     Indication: PRODUCT USED FOR UNKNOWN INDICATION
  5. ALBUTEROL [Concomitant]
  6. YAZ [Suspect]
     Indication: PRODUCT USED FOR UNKNOWN INDICATION
  7. SKELAXIN [Concomitant]

REACTIONS (4)
  - CHOLECYSTITIS [None]
  - GALLBLADDER DISORDER [None]
  - RENAL FAILURE [None]
  - NEPHROLITHIASIS [None]
